FAERS Safety Report 7601913-X (Version None)
Quarter: 2011Q3

REPORT INFORMATION
  Report Type: 
  Country: None (occurrence: None)
  Receive Date: 20110711
  Receipt Date: 20110707
  Transmission Date: 20111222
  Serious: Yes (Other)
  Sender: FDA-Public Use
  Company Number: US-PFIZER INC-2011154396

PATIENT
  Sex: Female
  Weight: 104.3 kg

DRUGS (1)
  1. CHANTIX [Suspect]
     Indication: SMOKING CESSATION THERAPY
     Dosage: 0.5 MG, DAILY
     Route: 048
     Dates: start: 20110606, end: 20110601

REACTIONS (10)
  - ANXIETY [None]
  - FORMICATION [None]
  - PILOERECTION [None]
  - FEAR [None]
  - INSOMNIA [None]
  - PANIC ATTACK [None]
  - NIGHTMARE [None]
  - HALLUCINATION [None]
  - ABNORMAL DREAMS [None]
  - CRYING [None]
